FAERS Safety Report 5754021-7 (Version None)
Quarter: 2008Q2

REPORT INFORMATION
  Report Type: 
  Country: None (occurrence: None)
  Receive Date: 20080530
  Receipt Date: 20080514
  Transmission Date: 20081010
  Serious: Yes (Hospitalization)
  Sender: FDA-Public Use
  Company Number: PHHO2008FI02680

PATIENT
  Sex: Male

DRUGS (4)
  1. ENTACAPONE-LEVODOPA-CARBIDOPA E-L-C+ [Suspect]
     Indication: PARKINSON'S DISEASE
     Dosage: 100 MG, UNK
     Dates: start: 20071219, end: 20080121
  2. SINEMET [Suspect]
  3. ATARIN [Concomitant]
  4. FINASTERIDE [Concomitant]

REACTIONS (8)
  - AMNESIA [None]
  - ANTISOCIAL BEHAVIOUR [None]
  - DELIRIUM [None]
  - DISORIENTATION [None]
  - DRUG ADMINISTRATION ERROR [None]
  - HALLUCINATION, VISUAL [None]
  - MINI MENTAL STATUS EXAMINATION ABNORMAL [None]
  - OVERDOSE [None]
